FAERS Safety Report 25684663 (Version 1)
Quarter: 2025Q3

REPORT INFORMATION
  Report Type: Spontaneous
  Country: US (occurrence: US)
  Receive Date: 20250815
  Receipt Date: 20250815
  Transmission Date: 20251021
  Serious: No
  Sender: DR REDDYS
  Company Number: US-DRL-USA-USA/2025/08/012042

PATIENT
  Age: 30 Year
  Sex: Female

DRUGS (3)
  1. NORETHINDRONE [Suspect]
     Active Substance: NORETHINDRONE
     Indication: Endometriosis
  2. RELUGOLIX [Concomitant]
     Active Substance: RELUGOLIX
     Indication: Endometriosis
  3. ESTRADIOL [Concomitant]
     Active Substance: ESTRADIOL
     Indication: Endometriosis

REACTIONS (1)
  - Drug ineffective for unapproved indication [Unknown]
